FAERS Safety Report 4405321-4 (Version None)
Quarter: 2004Q3

REPORT INFORMATION
  Report Type: 
  Country: None (occurrence: None)
  Receive Date: 20040720
  Receipt Date: 20040707
  Transmission Date: 20050211
  Serious: Yes (Hospitalization)
  Sender: FDA-Public Use
  Company Number: HQWYE181016JUL04

PATIENT
  Age: 70 Year
  Sex: Male

DRUGS (15)
  1. AMIODARONE (AMIODARONE, INJECTION) [Suspect]
     Indication: ATRIAL FIBRILLATION
     Dosage: 300 MG/HR, INTRAVENOUS
     Route: 042
     Dates: start: 20040429, end: 20040429
  2. AMIODARONE (AMIODARONE, INJECTION) [Suspect]
     Dosage: 900 MG/24 HR, INTRAVENOUS
     Route: 042
     Dates: start: 20040430, end: 20040501
  3. ZOCOR [Concomitant]
  4. ALBYL-E (ACETYLSALICYLIC ACID/MAGNESIUM OXIDE) [Concomitant]
  5. ZOPICLONE [Concomitant]
  6. FUROSEMIDE [Concomitant]
  7. NITROGLYCERIN [Concomitant]
  8. RAMIPRIL [Concomitant]
  9. SELO-ZOK (METOPROLOL SUCCINATE) [Concomitant]
  10. CHLORAMPHENICOL [Concomitant]
  11. PARACET (PARACETAMOL) [Concomitant]
  12. KETOBEMIDONE [Concomitant]
  13. KLEXANE (HEPARIN-FRACTION, SODIUM SALT) [Concomitant]
  14. VOLTAREN [Concomitant]
  15. ZOFRAN [Concomitant]

REACTIONS (8)
  - ALANINE AMINOTRANSFERASE INCREASED [None]
  - ANOREXIA [None]
  - ASPARTATE AMINOTRANSFERASE INCREASED [None]
  - BLOOD ALKALINE PHOSPHATASE INCREASED [None]
  - BLOOD BILIRUBIN INCREASED [None]
  - BLOOD CREATININE INCREASED [None]
  - FATIGUE [None]
  - GAMMA-GLUTAMYLTRANSFERASE INCREASED [None]
